FAERS Safety Report 17007942 (Version 4)
Quarter: 2025Q3

REPORT INFORMATION
  Report Type: Spontaneous
  Country: EU (occurrence: EU)
  Receive Date: 20191108
  Receipt Date: 20250709
  Transmission Date: 20251021
  Serious: Yes (Hospitalization, Other)
  Sender: AUROBINDO
  Company Number: EU-TEVA-2019-RO-1128740

PATIENT
  Age: 68 Year
  Sex: Male

DRUGS (2)
  1. IBUPROFEN [Suspect]
     Active Substance: IBUPROFEN
     Indication: Migraine
     Dosage: 2 GRAM, ONCE A DAY
     Route: 048
  2. CARBAMAZEPINE [Suspect]
     Active Substance: CARBAMAZEPINE
     Indication: Migraine
     Dosage: 600 MILLIGRAM, ONCE A DAY
     Route: 065

REACTIONS (20)
  - Tracheo-oesophageal fistula [Recovered/Resolved]
  - Dysphagia [Recovered/Resolved]
  - Dysphonia [Recovered/Resolved]
  - Lymphadenopathy [Unknown]
  - Adrenal adenoma [Unknown]
  - Productive cough [Unknown]
  - Hypokalaemia [Unknown]
  - Pallor [Unknown]
  - Rales [Unknown]
  - Systemic inflammatory response syndrome [Unknown]
  - Anaemia [Unknown]
  - Haemangioma of liver [Unknown]
  - Cough [Unknown]
  - Cachexia [Unknown]
  - Pneumonia [Unknown]
  - Cholestasis [Unknown]
  - Drug abuse [Unknown]
  - Overdose [Unknown]
  - Nutritional condition abnormal [Unknown]
  - Intentional product misuse [Unknown]
